FAERS Safety Report 10328000 (Version 1)
Quarter: 2014Q3

REPORT INFORMATION
  Report Type: Spontaneous
  Country: DE (occurrence: DE)
  Receive Date: 20140721
  Receipt Date: 20140721
  Transmission Date: 20150326
  Serious: Yes (Disabling, Other)
  Sender: FDA-Public Use
  Company Number: DE-RANBAXY-2014RR-83427

PATIENT
  Age: 83 Year
  Sex: Male

DRUGS (1)
  1. CIPRO [Suspect]
     Active Substance: CIPROFLOXACIN HYDROCHLORIDE
     Indication: URINARY TRACT INFLAMMATION
     Dosage: 1 DF, BID
     Route: 048

REACTIONS (2)
  - Musculoskeletal stiffness [Unknown]
  - Pyrexia [Unknown]
